FAERS Safety Report 6855072-1 (Version None)
Quarter: 2010Q3

REPORT INFORMATION
  Report Type: 
  Country: None (occurrence: None)
  Receive Date: 20100717
  Receipt Date: 20081125
  Transmission Date: 20110219
  Serious: Yes (Hospitalization)
  Sender: FDA-Public Use
  Company Number: US-PFIZER INC-2007108661

PATIENT
  Age: 45 Year
  Sex: Female

DRUGS (6)
  1. CHANTIX [Suspect]
     Indication: SMOKING CESSATION THERAPY
     Dosage: 1 MG, 2X/DAY
     Route: 048
     Dates: start: 20060922, end: 20061001
  2. EFFEXOR XR [Concomitant]
  3. ADVAIR DISKUS 100/50 [Concomitant]
     Dosage: 500/50
  4. GLIPIZIDE [Concomitant]
  5. ALBUTEROL [Concomitant]
  6. PROTONIX [Concomitant]

REACTIONS (2)
  - BLOOD GLUCOSE DECREASED [None]
  - GRAND MAL CONVULSION [None]
